FAERS Safety Report 9177245 (Version 1)
Quarter: 2013Q1

REPORT INFORMATION
  Report Type: Spontaneous
  Country: US (occurrence: None)
  Receive Date: 20130320
  Receipt Date: 20130320
  Transmission Date: 20140127
  Serious: No
  Sender: FDA-Public Use
  Company Number: None

PATIENT
  Age: 62 Year
  Sex: Male
  Weight: 94 kg

DRUGS (1)
  1. DIVALPROEX [Suspect]
     Indication: CONVULSION
     Route: 048
     Dates: start: 20121219, end: 20130119

REACTIONS (1)
  - Pancreatitis acute [None]
